FAERS Safety Report 11473703 (Version 1)
Quarter: 2015Q3

REPORT INFORMATION
  Report Type: Spontaneous
  Country: US (occurrence: US)
  Receive Date: 20150908
  Receipt Date: 20150908
  Transmission Date: 20151125
  Serious: Yes (Hospitalization, Other)
  Sender: FDA-Public Use
  Company Number: US-B.I. PHARMACEUTICALS,INC./RIDGEFIELD-2015-BI-47679BP

PATIENT
  Age: 91 Year
  Sex: Female
  Weight: 54 kg

DRUGS (1)
  1. MIRAPEX [Suspect]
     Active Substance: PRAMIPEXOLE DIHYDROCHLORIDE
     Indication: PRODUCT USED FOR UNKNOWN INDICATION
     Route: 065

REACTIONS (3)
  - Pain in extremity [Not Recovered/Not Resolved]
  - Transient ischaemic attack [Recovered/Resolved]
  - Restless legs syndrome [Not Recovered/Not Resolved]

NARRATIVE: CASE EVENT DATE: 201504
